FAERS Safety Report 8479445-9 (Version None)
Quarter: 2012Q2

REPORT INFORMATION
  Report Type: 
  Country: None (occurrence: None)
  Receive Date: 20120402
  Receipt Date: 20120113
  Transmission Date: 20120825
  Serious: Yes (Life-Threatening)
  Sender: FDA-Public Use
  Company Number: 2012ST000053

PATIENT
  Age: 4 Year
  Sex: Female
  Weight: 17 kg

DRUGS (2)
  1. ONCASPAR [Suspect]
     Indication: ACUTE LYMPHOCYTIC LEUKAEMIA
     Dosage: 1725 IU;X1;IV
     Route: 042
     Dates: start: 20120106, end: 20120106
  2. ONCASPAR [Suspect]

REACTIONS (4)
  - DYSPNOEA [None]
  - ANAPHYLACTIC SHOCK [None]
  - CYANOSIS [None]
  - ERYTHEMA [None]
